FAERS Safety Report 5428248-8 (Version None)
Quarter: 2007Q3

REPORT INFORMATION
  Report Type: 
  Country: None (occurrence: None)
  Receive Date: 20070828
  Receipt Date: 20070821
  Transmission Date: 20080115
  Serious: Yes (Other)
  Sender: FDA-Public Use
  Company Number: US-ABBOTT-07P-163-0378812-00

PATIENT
  Age: 5 Month
  Sex: Female
  Weight: 5.3 kg

DRUGS (6)
  1. SEVOFLURANE [Suspect]
     Indication: ANAESTHESIA
     Dosage: UP TO 3%
  2. PROPOFOL [Suspect]
     Indication: ANAESTHESIA
     Dosage: 15 MG, (2.8 MG/KG) MCG/KG/MIN
  3. NITROUS OXIDE [Suspect]
     Indication: ANAESTHESIA
     Dosage: NOT REPORTED
  4. OXYGEN [Suspect]
     Indication: ANAESTHESIA
     Dosage: NOT REPORTED
  5. ROCURONIUM BROMIDE [Suspect]
     Indication: ANAESTHESIA
     Dosage: NOT REPORTED
  6. RHGAA [Concomitant]
     Indication: GLYCOGEN STORAGE DISEASE TYPE II
     Dosage: TWO DOSES, (20 MG/KG)

REACTIONS (3)
  - OXYGEN SATURATION DECREASED [None]
  - VENTRICULAR FIBRILLATION [None]
  - VENTRICULAR TACHYCARDIA [None]
